FAERS Safety Report 12091673 (Version 3)
Quarter: 2025Q4

REPORT INFORMATION
  Report Type: Spontaneous
  Country: EU (occurrence: EU)
  Receive Date: 20160218
  Receipt Date: 20251003
  Transmission Date: 20260117
  Serious: Yes (Hospitalization)
  Sender: BAUSCH AND LOMB
  Company Number: EU-MLMSERVICE-20160211-0170830-1

PATIENT
  Age: 29 Year
  Sex: Male

DRUGS (7)
  1. DIAZEPAM [Suspect]
     Active Substance: DIAZEPAM
     Indication: Product used for unknown indication
     Route: 065
     Dates: start: 201304
  2. TRAMADOL HYDROCHLORIDE [Concomitant]
     Active Substance: TRAMADOL HYDROCHLORIDE
     Indication: Product used for unknown indication
     Dosage: 30 PIECES OF 50MG
     Dates: start: 201303, end: 201303
  3. PREGABALIN [Concomitant]
     Active Substance: PREGABALIN
     Indication: Generalised anxiety disorder
     Dates: start: 201207
  4. PREGABALIN [Concomitant]
     Active Substance: PREGABALIN
     Dosage: INCREASE OF DOSAGE BY THE PATIENT HIMSELF TO AN AVERAGE OF 750 MG PER DAY WITH A DAILY INTAKE UP TO
  5. PREGABALIN [Concomitant]
     Active Substance: PREGABALIN
     Dosage: A TOTAL OF 20 PIECES OF 150 MG OF PGL
     Dates: start: 201303, end: 201303
  6. PREGABALIN [Concomitant]
     Active Substance: PREGABALIN
     Dosage: PLG IN OVERDOSE IN JUL/2013
     Dates: start: 2013, end: 201307
  7. PREGABALIN [Concomitant]
     Active Substance: PREGABALIN
     Dosage: INTAKE OF PGL WAS GRADUALLY DECREASED UNTIL WITHDRAWAL
     Dates: start: 2013, end: 2013

REACTIONS (2)
  - Drug abuse [Unknown]
  - Overdose [Unknown]

NARRATIVE: CASE EVENT DATE: 20130401
